FAERS Safety Report 7450350-X (Version None)
Quarter: 2011Q2

REPORT INFORMATION
  Report Type: 
  Country: None (occurrence: None)
  Receive Date: 20110502
  Receipt Date: 20110418
  Transmission Date: 20111010
  Serious: Yes (Other)
  Sender: FDA-Public Use
  Company Number: US-JNJFOC-20110407921

PATIENT
  Sex: Female
  Weight: 47.63 kg

DRUGS (1)
  1. REMICADE [Suspect]
     Indication: CROHN'S DISEASE
     Route: 042

REACTIONS (9)
  - APTYALISM [None]
  - PSORIASIS [None]
  - MYALGIA [None]
  - ALOPECIA [None]
  - INNER EAR DISORDER [None]
  - DERMATITIS ACNEIFORM [None]
  - ARTHRALGIA [None]
  - RASH MACULAR [None]
  - RASH PUSTULAR [None]
